FAERS Safety Report 17291459 (Version 1)
Quarter: 2020Q1

REPORT INFORMATION
  Report Type: Spontaneous
  Country: US (occurrence: US)
  Receive Date: 20200117
  Receipt Date: 20200117
  Transmission Date: 20200409
  Serious: No
  Sender: FDA-Public Use
  Company Number: None

PATIENT
  Age: 63 Year
  Sex: Female
  Weight: 77.6 kg

DRUGS (4)
  1. YERVOY [Suspect]
     Active Substance: IPILIMUMAB
     Indication: NON-SMALL CELL LUNG CANCER METASTATIC
     Dosage: ?          OTHER FREQUENCY:ONE TIME INFUSION;?
     Route: 055
     Dates: start: 20200117, end: 20200117
  2. DIPHENHYDRAMINE 25 MG [Concomitant]
     Dates: start: 20200117, end: 20200117
  3. YERVOY [Suspect]
     Active Substance: IPILIMUMAB
     Indication: NON-SMALL CELL LUNG CANCER METASTATIC
     Dosage: ?          OTHER FREQUENCY:ONE TIME INFUSION;?
     Route: 051
     Dates: start: 20200117, end: 20200117
  4. HYDROCORTISONE 100 MG [Concomitant]
     Dates: start: 20200117, end: 20200117

REACTIONS (6)
  - Infusion related reaction [None]
  - Headache [None]
  - Chest discomfort [None]
  - Dyspnoea [None]
  - Back pain [None]
  - Somnolence [None]

NARRATIVE: CASE EVENT DATE: 20200117
